FAERS Safety Report 20688699 (Version 1)
Quarter: 2022Q2

REPORT INFORMATION
  Report Type: Spontaneous
  Country: IT (occurrence: IT)
  Receive Date: 20220408
  Receipt Date: 20220408
  Transmission Date: 20220721
  Serious: Yes (Other)
  Sender: FDA-Public Use
  Company Number: IT-AMGEN-ITASP2022060789

PATIENT
  Sex: Female

DRUGS (4)
  1. VECTIBIX [Suspect]
     Active Substance: PANITUMUMAB
     Indication: Product used for unknown indication
     Dosage: UNK UNK, CYCLICAL
     Route: 065
     Dates: start: 2006
  2. LEUCOVORIN [Concomitant]
     Active Substance: LEUCOVORIN
     Dosage: UNK UNK, CYCLICAL
     Dates: start: 2006
  3. FLUOROURACIL [Concomitant]
     Active Substance: FLUOROURACIL
     Dosage: UNK UNK, CYCLICAL
     Route: 065
     Dates: start: 2006
  4. OXALIPLATIN [Concomitant]
     Active Substance: OXALIPLATIN
     Dosage: UNK UNK, CYCLICAL
     Dates: start: 2006

REACTIONS (1)
  - Thrombocytopenia [Unknown]
